FAERS Safety Report 6442024-9 (Version None)
Quarter: 2009Q4

REPORT INFORMATION
  Report Type: 
  Country: None (occurrence: None)
  Receive Date: 20091116
  Receipt Date: 20091103
  Transmission Date: 20100525
  Serious: Yes (Death, Life-Threatening, Hospitalization)
  Sender: FDA-Public Use
  Company Number: IL-GENENTECH-289272

PATIENT
  Age: 60 Year
  Sex: Female

DRUGS (4)
  1. RITUXIMAB [Suspect]
     Indication: RHEUMATOID ARTHRITIS
     Dosage: 1000 UNK, UNK
     Route: 042
     Dates: start: 20051101, end: 20081005
  2. METHOTREXATE [Concomitant]
     Indication: RHEUMATOID ARTHRITIS
     Dosage: 1000 UNK, UNK
  3. STEROID NOS [Concomitant]
     Indication: RHEUMATOID ARTHRITIS
     Dosage: UNK
  4. ALENDRONATE [Concomitant]
     Indication: DRUG USE FOR UNKNOWN INDICATION

REACTIONS (6)
  - ACUTE RESPIRATORY DISTRESS SYNDROME [None]
  - LUNG INFILTRATION [None]
  - PNEUMOCYSTIS JIROVECI PNEUMONIA [None]
  - PULMONARY FIBROSIS [None]
  - RESPIRATORY DISORDER [None]
  - RESPIRATORY DISTRESS [None]
